FAERS Safety Report 8977831 (Version 1)
Quarter: 2012Q4

REPORT INFORMATION
  Report Type: 
  Country: US (occurrence: US)
  Receive Date: 20121219
  Receipt Date: 20121219
  Transmission Date: 20130627
  Serious: No
  Sender: FDA-Public Use
  Company Number: US-UPSHER-SMITH LABORATORIES, INC.-12000750

PATIENT
  Age: 58 Year
  Sex: Male

DRUGS (2)
  1. MIDODRINE HCL [Suspect]
     Indication: PRODUCT USED FOR UNKNOWN INDICATION
     Dosage: UNK
     Route: 048
  2. UNKNOWN [Concomitant]

REACTIONS (4)
  - Hypertension [Unknown]
  - Chest pain [Unknown]
  - Dizziness [Unknown]
  - Hot flush [Unknown]
